FAERS Safety Report 4376720-4 (Version None)
Quarter: 2004Q2

REPORT INFORMATION
  Report Type: 
  Country: None (occurrence: None)
  Receive Date: 20040608
  Receipt Date: 20040526
  Transmission Date: 20050107
  Serious: Yes (Death, Hospitalization)
  Sender: FDA-Public Use
  Company Number: 2003122439

PATIENT
  Age: 73 Year
  Sex: Male

DRUGS (1)
  1. TIKOSYN [Suspect]
     Indication: VENTRICULAR ARRHYTHMIA
     Dates: start: 20031002, end: 20031030

REACTIONS (2)
  - CARDIAC FAILURE CONGESTIVE [None]
  - VENTRICULAR ARRHYTHMIA [None]
